FAERS Safety Report 19864669 (Version 5)
Quarter: 2025Q1

REPORT INFORMATION
  Report Type: Spontaneous
  Country: US (occurrence: US)
  Receive Date: 20210921
  Receipt Date: 20250218
  Transmission Date: 20250409
  Serious: No
  Sender: MERZ
  Company Number: US-ACORDA-ACO_169900_2021

PATIENT
  Age: 82 Year
  Sex: Female

DRUGS (17)
  1. INBRIJA [Suspect]
     Active Substance: LEVODOPA
     Indication: Parkinson^s disease
     Dates: start: 20210727
  2. INBRIJA [Suspect]
     Active Substance: LEVODOPA
     Indication: On and off phenomenon
     Dates: start: 20210727
  3. INBRIJA [Suspect]
     Active Substance: LEVODOPA
     Dates: start: 20210727
  4. INBRIJA [Suspect]
     Active Substance: LEVODOPA
     Dates: start: 20210727
  5. INBRIJA [Suspect]
     Active Substance: LEVODOPA
     Dates: start: 20210727
  6. INBRIJA [Suspect]
     Active Substance: LEVODOPA
     Dates: start: 20210727
  7. INBRIJA [Suspect]
     Active Substance: LEVODOPA
     Dates: start: 20210727
  8. INBRIJA [Suspect]
     Active Substance: LEVODOPA
  9. INBRIJA [Suspect]
     Active Substance: LEVODOPA
  10. INBRIJA [Suspect]
     Active Substance: LEVODOPA
     Dosage: 2 DOSAGE FORM, BID
  11. INBRIJA [Suspect]
     Active Substance: LEVODOPA
     Dates: start: 20210727
  12. MIRAPEX [Suspect]
     Active Substance: PRAMIPEXOLE DIHYDROCHLORIDE
     Indication: Product used for unknown indication
     Route: 065
  13. RYTARY [Concomitant]
     Active Substance: CARBIDOPA\LEVODOPA
     Indication: Product used for unknown indication
     Route: 065
  14. RYTARY [Concomitant]
     Active Substance: CARBIDOPA\LEVODOPA
     Route: 065
  15. RYTARY [Concomitant]
     Active Substance: CARBIDOPA\LEVODOPA
     Route: 065
  16. XADAGO [Concomitant]
     Active Substance: SAFINAMIDE MESYLATE
     Indication: Product used for unknown indication
     Dosage: 0.5 MILLIGRAM, BID
     Route: 065
  17. XADAGO [Concomitant]
     Active Substance: SAFINAMIDE MESYLATE
     Route: 065

REACTIONS (11)
  - Muscular weakness [Unknown]
  - Parkinson^s disease [Not Recovered/Not Resolved]
  - Device difficult to use [Unknown]
  - Wrong technique in device usage process [Unknown]
  - Product packaging difficult to open [Unknown]
  - Device occlusion [Unknown]
  - Device issue [Unknown]
  - Product storage error [Unknown]
  - Device physical property issue [Not Recovered/Not Resolved]
  - Dyskinesia [Unknown]
  - Cough [Unknown]

NARRATIVE: CASE EVENT DATE: 20210727
